FAERS Safety Report 8789749 (Version 3)
Quarter: 2013Q2

REPORT INFORMATION
  Report Type: Spontaneous
  Country: CA (occurrence: None)
  Receive Date: 20120906
  Receipt Date: 20130618
  Transmission Date: 20140414
  Serious: Yes (Other)
  Sender: FDA-Public Use
  Company Number: 2012AP002725

PATIENT
  Sex: Male

DRUGS (4)
  1. APO-RANITIDINE [Suspect]
     Indication: PRODUCT USED FOR UNKNOWN INDICATION
  2. FELDENE (PIROXICAM) [Concomitant]
  3. CIALIS (TADALAFIL) [Concomitant]
  4. CODEINE (CODEINE) [Concomitant]

REACTIONS (2)
  - Haematochezia [None]
  - Product substitution issue [None]
